FAERS Safety Report 11372561 (Version 1)
Quarter: 2015Q3

REPORT INFORMATION
  Report Type: Spontaneous
  Country: US (occurrence: US)
  Receive Date: 20150811
  Receipt Date: 20150811
  Transmission Date: 20151125
  Serious: No
  Sender: FDA-Public Use
  Company Number: US-ELI_LILLY_AND_COMPANY-US201209002746

PATIENT
  Sex: Male

DRUGS (1)
  1. AXIRON [Suspect]
     Active Substance: TESTOSTERONE
     Indication: BLOOD TESTOSTERONE DECREASED
     Dosage: 60 MG, BID
     Dates: start: 201208

REACTIONS (4)
  - Burning sensation [Unknown]
  - Urticaria [Unknown]
  - Inappropriate schedule of drug administration [Unknown]
  - Rash [Unknown]
